FAERS Safety Report 8224882-0 (Version None)
Quarter: 2012Q1

REPORT INFORMATION
  Report Type: 
  Country: None (occurrence: None)
  Receive Date: 20120321
  Receipt Date: 20120312
  Transmission Date: 20120608
  Serious: Yes (Other)
  Sender: FDA-Public Use
  Company Number: US-ROCHE-1022808

PATIENT
  Sex: Female
  Weight: 98.518 kg

DRUGS (2)
  1. ACCUTANE [Suspect]
     Route: 065
     Dates: end: 20080501
  2. ACCUTANE [Suspect]
     Indication: ACNE
     Route: 065
     Dates: start: 20031121, end: 20040419

REACTIONS (5)
  - IRRITABLE BOWEL SYNDROME [None]
  - NERVOUS SYSTEM DISORDER [None]
  - INFLAMMATORY BOWEL DISEASE [None]
  - DEPRESSION [None]
  - EMOTIONAL DISTRESS [None]
